FAERS Safety Report 4630304-9 (Version None)
Quarter: 2005Q2

REPORT INFORMATION
  Report Type: 
  Country: None (occurrence: None)
  Receive Date: 20050408
  Receipt Date: 20041223
  Transmission Date: 20051028
  Serious: Yes (Other)
  Sender: FDA-Public Use
  Company Number: 200422508GDDC

PATIENT
  Age: 59 Year
  Sex: Male
  Weight: 98.65 kg

DRUGS (8)
  1. LANTUS [Suspect]
     Indication: DIABETES MELLITUS NON-INSULIN-DEPENDENT
     Dosage: DOSE: VARIABLE
     Route: 058
     Dates: start: 20030201
  2. ATORVASTATIN CALCIUM [Concomitant]
     Indication: LIPIDS INCREASED
     Dosage: DOSE: 10-20
     Route: 048
     Dates: start: 20030813
  3. ETORICOXIB [Concomitant]
     Indication: ARTHRITIS
     Dosage: DOSE: 90-120
     Route: 048
     Dates: start: 20030626
  4. LANSOPRAZOLE [Concomitant]
     Indication: DYSPEPSIA
     Route: 048
     Dates: start: 19981111
  5. MOVELAT [Concomitant]
     Indication: ARTHRALGIA
     Route: 061
     Dates: start: 19940113
  6. NOVORAPID [Concomitant]
     Indication: DIABETES MELLITUS
     Dosage: DOSE: VARIABLE
     Route: 058
     Dates: start: 20020918
  7. SILDENAFIL [Concomitant]
     Indication: ERECTILE DYSFUNCTION
     Route: 048
     Dates: start: 19990618
  8. SOLPADOL [Concomitant]
     Indication: ARTHRALGIA
     Dosage: DOSE: 2 TABLS
     Route: 048
     Dates: start: 20030626

REACTIONS (3)
  - ARTHRALGIA [None]
  - LIPODYSTROPHY ACQUIRED [None]
  - NEOPLASM [None]
